FAERS Safety Report 8232263-9 (Version None)
Quarter: 2012Q1

REPORT INFORMATION
  Report Type: 
  Country: None (occurrence: None)
  Receive Date: 20120323
  Receipt Date: 20120315
  Transmission Date: 20120608
  Serious: Yes (Hospitalization)
  Sender: FDA-Public Use
  Company Number: US-ACTELION-A-US2011-58469

PATIENT

DRUGS (2)
  1. COUMADIN [Concomitant]
  2. TRACLEER [Suspect]
     Indication: PULMONARY ARTERIAL HYPERTENSION
     Dosage: UNK
     Route: 048
     Dates: start: 20060725

REACTIONS (11)
  - BRAIN NATRIURETIC PEPTIDE INCREASED [None]
  - DYSPNOEA [None]
  - OXYGEN SATURATION DECREASED [None]
  - THYROIDECTOMY [None]
  - BLOOD CALCIUM ABNORMAL [None]
  - PYREXIA [None]
  - HYPERHIDROSIS [None]
  - FEELING COLD [None]
  - VOMITING [None]
  - NAUSEA [None]
  - FLUID RETENTION [None]
